FAERS Safety Report 23370125 (Version 3)
Quarter: 2024Q3

REPORT INFORMATION
  Report Type: Spontaneous
  Country: US (occurrence: US)
  Receive Date: 20240105
  Receipt Date: 20240718
  Transmission Date: 20241017
  Serious: No
  Sender: PFIZER
  Company Number: US-PFIZER INC-202300455223

PATIENT
  Age: 62 Year
  Sex: Female
  Weight: 52.154 kg

DRUGS (2)
  1. ESTRING [Suspect]
     Active Substance: ESTRADIOL
     Indication: Vaginal disorder
     Dosage: 2 MG
     Route: 067
     Dates: end: 2023
  2. ESTRING [Suspect]
     Active Substance: ESTRADIOL
     Indication: Perineal injury
     Dosage: 1 RING 3 MONTHS (STRENGTH: 7.5 MCG/ 24 HR RING).
     Route: 067
     Dates: start: 202303, end: 202306

REACTIONS (1)
  - Bacterial vulvovaginitis [Not Recovered/Not Resolved]

NARRATIVE: CASE EVENT DATE: 20230101
